FAERS Safety Report 14268611 (Version 1)
Quarter: 2017Q4

REPORT INFORMATION
  Report Type: Spontaneous
  Country: US (occurrence: US)
  Receive Date: 20171211
  Receipt Date: 20171211
  Transmission Date: 20180321
  Serious: Yes (Death, Hospitalization)
  Sender: FDA-Public Use
  Company Number: US-JNJFOC-20171212639

PATIENT
  Age: 44 Year
  Sex: Male

DRUGS (3)
  1. LISDEXAMFETAMINE [Suspect]
     Active Substance: LISDEXAMFETAMINE
     Indication: SUICIDE ATTEMPT
     Route: 065
  2. HYDROCODONE [Suspect]
     Active Substance: HYDROCODONE
     Indication: SUICIDE ATTEMPT
     Route: 065
  3. METHYLPHENIDATE HYDROCHLORIDE. [Suspect]
     Active Substance: METHYLPHENIDATE HYDROCHLORIDE
     Indication: SUICIDE ATTEMPT
     Route: 065

REACTIONS (1)
  - Toxicity to various agents [Fatal]
